FAERS Safety Report 7058303-0 (Version None)
Quarter: 2010Q4

REPORT INFORMATION
  Report Type: 
  Country: None (occurrence: None)
  Receive Date: 20101022
  Receipt Date: 20101021
  Transmission Date: 20110411
  Serious: Yes (Life-Threatening)
  Sender: FDA-Public Use
  Company Number: JP-EISAI INC.-E2020-07779-SPO-JP

PATIENT
  Age: 81 Year
  Sex: Male
  Weight: 40 kg

DRUGS (8)
  1. ARICEPT [Suspect]
     Route: 048
  2. ARICEPT [Suspect]
     Route: 048
     Dates: end: 20101001
  3. ARICEPT [Suspect]
     Route: 048
     Dates: start: 20101001
  4. 8-HOUR BAYER [Concomitant]
     Dosage: 100 MG DAILY
  5. OLMETEC [Concomitant]
     Dosage: 20 MG DAILY
  6. LIVALO [Concomitant]
     Dosage: 1 MG DAILY
  7. PLAVIX [Concomitant]
     Dosage: 75 MG DAILY
  8. PARIET [Concomitant]
     Dosage: 10 MG DAILY

REACTIONS (1)
  - SICK SINUS SYNDROME [None]
